FAERS Safety Report 6282356-0 (Version None)
Quarter: 2009Q3

REPORT INFORMATION
  Report Type: 
  Country: None (occurrence: None)
  Receive Date: 20090724
  Receipt Date: 20090715
  Transmission Date: 20100115
  Serious: Yes (Death)
  Sender: FDA-Public Use
  Company Number: JP-JNJFOC-20090606317

PATIENT
  Sex: Female
  Weight: 49.5 kg

DRUGS (7)
  1. DOXORUBICIN HCL [Suspect]
     Indication: OVARIAN CANCER RECURRENT
     Dosage: CYCLE 1 76 MG ONCE A DAY
     Route: 042
  2. DEXAMETHASONE [Concomitant]
     Indication: PROPHYLAXIS
     Route: 042
  3. RANITIDINE [Concomitant]
     Indication: PROPHYLAXIS
     Route: 042
  4. CHLORPHENIRAMINE MALEATE [Concomitant]
     Indication: PROPHYLAXIS
     Route: 042
  5. FENTANYL-100 [Concomitant]
     Indication: CANCER PAIN
     Route: 062
  6. DICLOFENAC SODIUM [Concomitant]
     Indication: CANCER PAIN
     Route: 048
  7. FAMOTIDINE [Concomitant]
     Route: 048

REACTIONS (1)
  - RESPIRATORY FAILURE [None]
